FAERS Safety Report 19977291 (Version 1)
Quarter: 2021Q4

REPORT INFORMATION
  Report Type: Spontaneous
  Country: US (occurrence: US)
  Receive Date: 20211020
  Receipt Date: 20211020
  Transmission Date: 20220303
  Serious: No
  Sender: FDA-Public Use
  Company Number: US-ALLERGAN-2110993US

PATIENT
  Age: 75 Year
  Sex: Female

DRUGS (3)
  1. LINZESS [Suspect]
     Active Substance: LINACLOTIDE
     Indication: Irritable bowel syndrome
     Dosage: 145 ?G, QAM
     Route: 048
     Dates: start: 20210306
  2. ALCOHOL [Suspect]
     Active Substance: ALCOHOL
     Dosage: UNK
     Dates: start: 20210309, end: 20210309
  3. LISINOPRIL [Concomitant]
     Active Substance: LISINOPRIL
     Indication: Hypertension
     Dosage: 10 MG
     Route: 048

REACTIONS (12)
  - Tremor [Recovered/Resolved]
  - Muscle spasms [Not Recovered/Not Resolved]
  - Loss of consciousness [Recovered/Resolved]
  - Dysphonia [Recovered/Resolved]
  - Fall [Recovered/Resolved]
  - Alcohol interaction [Unknown]
  - Eye contusion [Not Recovered/Not Resolved]
  - Hypersomnia [Recovered/Resolved]
  - Arthralgia [Not Recovered/Not Resolved]
  - Incorrect dose administered [Unknown]
  - Dysstasia [Recovered/Resolved]
  - Diarrhoea [Not Recovered/Not Resolved]

NARRATIVE: CASE EVENT DATE: 20210306
